FAERS Safety Report 10142763 (Version 2)
Quarter: 2014Q2

REPORT INFORMATION
  Report Type: Spontaneous
  Country: US (occurrence: None)
  Receive Date: 20140425
  Receipt Date: 20140519
  Transmission Date: 20141212
  Serious: Yes (Other)
  Sender: FDA-Public Use
  Company Number: UTC-047390

PATIENT
  Age: 75 Year
  Sex: Female
  Weight: 86.2 kg

DRUGS (3)
  1. TYVASO [Suspect]
     Indication: PULMONARY ARTERIAL HYPERTENSION
     Dosage: (3-9 BREATHS)
     Route: 055
     Dates: start: 20120702
  2. REVATIO (SILDENAFIL CITRATE ) UNKNOWN [Concomitant]
  3. COUMADIN /00014802/ (WARFARIN SODIUM) [Concomitant]

REACTIONS (3)
  - Fall [None]
  - Lower limb fracture [None]
  - Ankle fracture [None]
